FAERS Safety Report 23675287 (Version 1)
Quarter: 2024Q1

REPORT INFORMATION
  Report Type: Report from Study
  Country: US (occurrence: US)
  Receive Date: 20240327
  Receipt Date: 20240327
  Transmission Date: 20240409
  Serious: Yes (Other)
  Sender: FDA-Public Use
  Company Number: US-ABBVIE-5690706

PATIENT
  Age: 52 Year
  Sex: Female

DRUGS (1)
  1. SKYRIZI [Suspect]
     Active Substance: RISANKIZUMAB-RZAA
     Indication: Psoriasis
     Route: 058

REACTIONS (5)
  - Nephrolithiasis [Recovering/Resolving]
  - Psoriasis [Recovering/Resolving]
  - Haemorrhoids [Recovering/Resolving]
  - Stress [Unknown]
  - Procedural pain [Unknown]

NARRATIVE: CASE EVENT DATE: 20240201
